FAERS Safety Report 21020538 (Version 1)
Quarter: 2022Q2

REPORT INFORMATION
  Report Type: Spontaneous
  Country: DK (occurrence: DK)
  Receive Date: 20220629
  Receipt Date: 20220629
  Transmission Date: 20220721
  Serious: Yes (Death, Hospitalization)
  Sender: FDA-Public Use
  Company Number: None

PATIENT
  Age: 35 Year
  Sex: Female
  Weight: 46 kg

DRUGS (9)
  1. CLOZAPINE [Suspect]
     Active Substance: CLOZAPINE
     Indication: Schizophrenia
     Dosage: ADMINISTERED AT NIGHT., STRENGTH: 25MG
     Route: 048
     Dates: start: 20210608
  2. BISACODYL [Suspect]
     Active Substance: BISACODYL
     Indication: Suicide attempt
     Dosage: STRENGTH: 5 MG
     Route: 048
     Dates: start: 202110, end: 202110
  3. CLOZAPINE [Suspect]
     Active Substance: CLOZAPINE
     Indication: Mental disorder
     Dosage: DOSAGE: 100 MG MORNING, 100 MG MIDDAY AND 400 MG NIGHT. STRENGTH: 100 MG
     Route: 048
     Dates: start: 20210607
  4. MORPHINE [Concomitant]
     Active Substance: MORPHINE
     Indication: Product used for unknown indication
  5. OLANZAPINE [Concomitant]
     Active Substance: OLANZAPINE
     Indication: Mental disorder
     Dates: start: 20210225
  6. OXAZEPAM [Concomitant]
     Active Substance: OXAZEPAM
     Indication: Product used for unknown indication
  7. ACETAMINOPHEN [Concomitant]
     Active Substance: ACETAMINOPHEN
     Indication: Pain
     Dates: start: 20190321
  8. RIVOTRIL [Concomitant]
     Active Substance: CLONAZEPAM
     Indication: Sedative therapy
     Dates: start: 20200519
  9. BISACODYL [Concomitant]
     Active Substance: BISACODYL
     Dates: start: 202110, end: 202110

REACTIONS (7)
  - Constipation [Unknown]
  - Abdominal pain [Unknown]
  - Cardiac arrest [Fatal]
  - Respiratory failure [Fatal]
  - Torsade de pointes [Fatal]
  - Dyspnoea [Fatal]
  - Arrhythmia [Fatal]

NARRATIVE: CASE EVENT DATE: 20211029
